FAERS Safety Report 20035115 (Version 3)
Quarter: 2022Q1

REPORT INFORMATION
  Report Type: Report from Study
  Country: CO (occurrence: CO)
  Receive Date: 20211104
  Receipt Date: 20220225
  Transmission Date: 20220423
  Serious: Yes (Hospitalization, Other)
  Sender: FDA-Public Use
  Company Number: CO-NOVARTISPH-NVSC2021CO145675

PATIENT
  Sex: Female
  Weight: 58 kg

DRUGS (5)
  1. ELTROMBOPAG OLAMINE [Suspect]
     Active Substance: ELTROMBOPAG OLAMINE
     Indication: Aplastic anaemia
     Dosage: 150 MG, QD (STOP:ONE MONTH AGO)
     Route: 048
     Dates: start: 202101
  2. ELTROMBOPAG OLAMINE [Suspect]
     Active Substance: ELTROMBOPAG OLAMINE
     Dosage: 150 MG, QD
     Route: 048
  3. ELTROMBOPAG OLAMINE [Suspect]
     Active Substance: ELTROMBOPAG OLAMINE
     Dosage: UNK
     Route: 048
  4. CYCLOSPORINE [Suspect]
     Active Substance: CYCLOSPORINE
     Indication: Product used for unknown indication
     Dosage: UNK (EVERY 12 HOUR)
     Route: 048
     Dates: start: 202012
  5. ACYCLOVIR [Concomitant]
     Active Substance: ACYCLOVIR
     Indication: Product used for unknown indication
     Dosage: UNK, Q12H
     Route: 048
     Dates: start: 202012

REACTIONS (14)
  - Platelet count decreased [Recovering/Resolving]
  - Boredom [Unknown]
  - Fatigue [Unknown]
  - Aplastic anaemia [Unknown]
  - Feeling abnormal [Unknown]
  - Illness [Unknown]
  - Contusion [Unknown]
  - Discouragement [Unknown]
  - Dizziness [Unknown]
  - Headache [Unknown]
  - Bone pain [Unknown]
  - Chills [Unknown]
  - Nausea [Unknown]
  - Product supply issue [Unknown]
